FAERS Safety Report 24224279 (Version 1)
Quarter: 2024Q3

REPORT INFORMATION
  Report Type: Spontaneous
  Country: CA (occurrence: None)
  Receive Date: 20240818
  Receipt Date: 20240818
  Transmission Date: 20241016
  Serious: Yes (Disabling)
  Sender: Public
  Company Number: None

PATIENT
  Age: 37 Year
  Sex: Female
  Weight: 76.05 kg

DRUGS (1)
  1. WELLBUTRIN [Suspect]
     Active Substance: BUPROPION HYDROCHLORIDE
     Indication: Depression
     Dosage: ORAL
     Route: 048
     Dates: start: 20240803

REACTIONS (13)
  - Weight increased [None]
  - Abdominal pain upper [None]
  - Muscle spasms [None]
  - Vision blurred [None]
  - Pain [None]
  - Eye pain [None]
  - Vitreous floaters [None]
  - Dizziness [None]
  - Disorientation [None]
  - Feeling of body temperature change [None]
  - Hunger [None]
  - Irritability [None]
  - Anger [None]
